FAERS Safety Report 18243452 (Version 1)
Quarter: 2020Q3

REPORT INFORMATION
  Report Type: Report from Study
  Country: BR (occurrence: BR)
  Receive Date: 20200908
  Receipt Date: 20200908
  Transmission Date: 20201103
  Serious: Yes (Death)
  Sender: FDA-Public Use
  Company Number: BR-MYLANLABS-2020M1077741

PATIENT
  Age: 56 Year

DRUGS (11)
  1. POLYMYXIN B. [Suspect]
     Active Substance: POLYMYXIN B
     Indication: ANTIBIOTIC THERAPY
  2. CEFEPIME [Concomitant]
     Active Substance: CEFEPIME HYDROCHLORIDE
     Indication: ANTIBIOTIC THERAPY
     Dosage: PRIOR ANTIBIOTIC THERAPY
     Route: 065
     Dates: start: 2014
  3. TEICOPLANIN [Concomitant]
     Active Substance: TEICOPLANIN
     Indication: ANTIBIOTIC THERAPY
     Dosage: GIVEN AS BOTH PRIOR ANTIBIOTIC THERAPY AND DEFINITIVE THERAPY DURING HOSPITALISATION.
     Route: 065
     Dates: start: 2014
  4. TEICOPLANIN [Concomitant]
     Active Substance: TEICOPLANIN
     Indication: ACINETOBACTER INFECTION
  5. TEICOPLANIN [Concomitant]
     Active Substance: TEICOPLANIN
     Indication: RESPIRATORY TRACT INFECTION BACTERIAL
  6. CEFAZOLIN [Concomitant]
     Active Substance: CEFAZOLIN
     Indication: ANTIBIOTIC THERAPY
     Dosage: PRIOR ANTIBIOTIC THERAPY
     Route: 065
  7. POLYMYXIN B. [Suspect]
     Active Substance: POLYMYXIN B
     Indication: ACINETOBACTER INFECTION
     Dosage: GIVEN AS BOTH PRIOR ANTIBIOTIC THERAPY AND DEFINITIVE...
     Route: 065
     Dates: start: 2014
  8. POLYMYXIN B. [Suspect]
     Active Substance: POLYMYXIN B
     Indication: RESPIRATORY TRACT INFECTION BACTERIAL
  9. ERTAPENEM. [Suspect]
     Active Substance: ERTAPENEM SODIUM
     Indication: ANTIBIOTIC THERAPY
     Dosage: PRIOR ANTIBIOTIC THERAPY
     Route: 065
     Dates: start: 2014
  10. MEROPENEM. [Suspect]
     Active Substance: MEROPENEM
     Indication: ANTIBIOTIC THERAPY
     Dosage: PRIOR ANTIBIOTIC THERAPY
     Route: 065
     Dates: start: 2014
  11. PIPERACILLIN AND TAZOBACTAM [Concomitant]
     Active Substance: PIPERACILLIN SODIUM\TAZOBACTAM SODIUM
     Indication: ANTIBIOTIC THERAPY
     Dosage: PRIOR ANTIBIOTIC THERAPY
     Route: 065
     Dates: start: 2014

REACTIONS (1)
  - Death [Fatal]

NARRATIVE: CASE EVENT DATE: 2014
